FAERS Safety Report 4423081-8 (Version None)
Quarter: 2004Q3

REPORT INFORMATION
  Report Type: 
  Country: None (occurrence: None)
  Receive Date: 20040810
  Receipt Date: 20040810
  Transmission Date: 20050211
  Serious: Yes (Hospitalization)
  Sender: FDA-Public Use
  Company Number: None

PATIENT
  Sex: Female
  Weight: 58.514 kg

DRUGS (7)
  1. GEMCITABINE 600MG/M2 LILLY [Suspect]
     Indication: NON-SMALL CELL LUNG CANCER
     Dosage: 1008 MGS DAY 1 AND INTRAVENOUS
     Route: 042
     Dates: start: 20040429, end: 20040617
  2. DOCETAXEL 40MG/M2 [Suspect]
     Indication: NON-SMALL CELL LUNG CANCER
     Dosage: 67.2 MGS DAY 1 AND INTRAVENOUS
     Route: 042
     Dates: start: 20040429, end: 20040617
  3. SYNTHROID [Concomitant]
  4. FOSAMAX [Concomitant]
  5. COMBIVENT [Concomitant]
  6. FLONASE [Concomitant]
  7. ZOFRAN [Concomitant]

REACTIONS (4)
  - ANXIETY [None]
  - ASTHENIA [None]
  - DYSPNOEA [None]
  - PNEUMONIA [None]
